FAERS Safety Report 7786841-1 (Version None)
Quarter: 2011Q3

REPORT INFORMATION
  Report Type: 
  Country: None (occurrence: None)
  Receive Date: 20110929
  Receipt Date: 20110927
  Transmission Date: 20111222
  Serious: Yes (Other)
  Sender: FDA-Public Use
  Company Number: VE-PFIZER INC-2011218178

PATIENT
  Age: 42 Year
  Sex: Male

DRUGS (3)
  1. LYRICA [Suspect]
     Indication: PAIN
     Dosage: 300 MG, 3X/DAY
     Route: 048
     Dates: start: 20110401, end: 20110701
  2. PREGABALIN [Concomitant]
     Indication: CARPAL TUNNEL SYNDROME
     Dosage: UNK
     Route: 048
  3. LOSARTAN POTASSIUM AND HYDROCHLOROTHIAZIDE [Concomitant]
     Indication: HYPERTENSION
     Dosage: 100 MG, 1X/DAY
     Route: 048
     Dates: start: 20050101

REACTIONS (3)
  - SUICIDAL IDEATION [None]
  - PANIC ATTACK [None]
  - INSOMNIA [None]
